FAERS Safety Report 18561093 (Version 5)
Quarter: 2021Q3

REPORT INFORMATION
  Report Type: Report from Study
  Country: US (occurrence: US)
  Receive Date: 20201130
  Receipt Date: 20210927
  Transmission Date: 20211014
  Serious: Yes (Hospitalization, Other)
  Sender: FDA-Public Use
  Company Number: US-SHIRE-US201912401AA

PATIENT
  Sex: Female

DRUGS (2)
  1. GAMMAGARD S/D [Suspect]
     Active Substance: HUMAN IMMUNOGLOBULIN G
     Indication: IMMUNODEFICIENCY COMMON VARIABLE
     Dosage: UNK
     Route: 065
  2. GAMMAGARD S/D [Suspect]
     Active Substance: HUMAN IMMUNOGLOBULIN G
     Indication: IMMUNODEFICIENCY COMMON VARIABLE
     Dosage: UNK
     Route: 065

REACTIONS (10)
  - Osteomyelitis [Unknown]
  - Weight decreased [Unknown]
  - Lung disorder [Recovering/Resolving]
  - Malaise [Unknown]
  - Myelitis [Unknown]
  - Infection [Unknown]
  - Gait disturbance [Unknown]
  - Pain [Unknown]
  - Staphylococcal infection [Unknown]
  - Headache [Unknown]
